FAERS Safety Report 22607740 (Version 1)
Quarter: 2023Q2

REPORT INFORMATION
  Report Type: Spontaneous
  Country: US (occurrence: US)
  Receive Date: 20230616
  Receipt Date: 20230616
  Transmission Date: 20230722
  Serious: No
  Sender: FDA-Public Use
  Company Number: US-Ipsen Biopharmaceuticals, Inc.-2023-14506

PATIENT
  Age: 60 Year
  Sex: Male
  Weight: 132 kg

DRUGS (1)
  1. TAZVERIK [Suspect]
     Active Substance: TAZEMETOSTAT HYDROBROMIDE
     Indication: Follicular lymphoma stage II
     Dosage: 800 MG, TWICE A DAILY
     Route: 048

REACTIONS (1)
  - Flatulence [Unknown]
